FAERS Safety Report 19070062 (Version 1)
Quarter: 2021Q1

REPORT INFORMATION
  Report Type: Report from Study
  Country: KR (occurrence: KR)
  Receive Date: 20210329
  Receipt Date: 20210329
  Transmission Date: 20210420
  Serious: Yes (Other)
  Sender: FDA-Public Use
  Company Number: KR-ASTELLAS-2018US038709

PATIENT
  Age: 74 Year
  Sex: Male

DRUGS (7)
  1. MOXICLE [AMOXICILLIN SODIUM;CLAVULANATE POTASSIUM] [Concomitant]
     Indication: PROPHYLAXIS
     Dosage: 625 MG, UNKNOWN FREQ. DAILY DOSE
     Route: 048
     Dates: start: 20170511, end: 20170614
  2. NAPROXEN. [Concomitant]
     Active Substance: NAPROXEN
     Indication: PROPHYLAXIS
     Dosage: 250 MG, UNKNOWN FREQ. 250 MG DAILY DOSE
     Route: 048
     Dates: start: 20170511, end: 20170608
  3. MUTERAN [Concomitant]
     Active Substance: ACETYLCYSTEINE
     Indication: PROPHYLAXIS
     Dosage: 200 MG, UNKNOWN FREQ. DAILY DOSE
     Route: 048
     Dates: end: 20170518
  4. IRCODON [Concomitant]
     Active Substance: OXYCODONE HYDROCHLORIDE
     Indication: PROPHYLAXIS
     Dosage: 5 MG, UNKNOWN FREQ. DAILY DOSE
     Route: 048
     Dates: end: 20170608
  5. LEUPLIN [Concomitant]
     Active Substance: LEUPROLIDE ACETATE
     Indication: PROSTATE CANCER
     Dosage: 3.75 MG, UNKNOWN FREQ. DAILY DOSE
     Route: 065
     Dates: end: 20170904
  6. ENZALUTAMIDE [Suspect]
     Active Substance: ENZALUTAMIDE
     Indication: HORMONE-REFRACTORY PROSTATE CANCER
     Route: 048
     Dates: start: 20170510, end: 20180116
  7. COFREL [BENPROPERINE EMBONATE] [Concomitant]
     Indication: PROPHYLAXIS
     Dosage: 20 MG, UNKNOWN FREQ. 20 MG DAILY DOSE
     Route: 048
     Dates: end: 20170518

REACTIONS (9)
  - Joint swelling [Recovered/Resolved]
  - Oedema peripheral [Recovered/Resolved]
  - Dizziness [Recovered/Resolved]
  - Nausea [Recovered/Resolved]
  - Hyperhidrosis [Recovered/Resolved]
  - Neuropathy peripheral [Recovered/Resolved]
  - Pruritus [Recovered/Resolved]
  - Fatigue [Recovered/Resolved]
  - Blood alkaline phosphatase increased [Not Recovered/Not Resolved]

NARRATIVE: CASE EVENT DATE: 20170607
